FAERS Safety Report 13673150 (Version 2)
Quarter: 2017Q3

REPORT INFORMATION
  Report Type: Report from Study
  Country: CZ (occurrence: CZ)
  Receive Date: 20170621
  Receipt Date: 20170721
  Transmission Date: 20171127
  Serious: Yes (Other)
  Sender: FDA-Public Use
  Company Number: CZ-TEVA-779125ROM

PATIENT
  Age: 43 Year
  Sex: Female

DRUGS (6)
  1. LETROX [Concomitant]
     Active Substance: LEVOTHYROXINE SODIUM
     Indication: THYROID DISORDER
     Route: 048
  2. MEDROL [Concomitant]
     Active Substance: METHYLPREDNISOLONE
     Indication: CLINICALLY ISOLATED SYNDROME
     Route: 048
  3. CALCIUM CHLORATUM [Concomitant]
  4. COPAXONE [Suspect]
     Active Substance: GLATIRAMER ACETATE
     Indication: CLINICALLY ISOLATED SYNDROME
     Route: 058
     Dates: start: 20151009
  5. LOSEPRAZOL [Concomitant]
     Active Substance: OMEPRAZOLE
     Route: 048
  6. LEFLUNOMIDE. [Concomitant]
     Active Substance: LEFLUNOMIDE
     Indication: RHEUMATOID ARTHRITIS
     Route: 048

REACTIONS (6)
  - Oropharyngeal discomfort [Recovered/Resolved]
  - Chills [Recovered/Resolved]
  - Fear of injection [Not Recovered/Not Resolved]
  - Tongue discomfort [Recovered/Resolved]
  - Immediate post-injection reaction [Recovered/Resolved]
  - Hot flush [Recovered/Resolved]

NARRATIVE: CASE EVENT DATE: 20170609
